FAERS Safety Report 10022003 (Version 6)
Quarter: 2016Q1

REPORT INFORMATION
  Report Type: Spontaneous
  Country: US (occurrence: US)
  Receive Date: 20140319
  Receipt Date: 20160226
  Transmission Date: 20160525
  Serious: Yes (Hospitalization, Other)
  Sender: FDA-Public Use
  Company Number: US-009507513-1403USA005856

PATIENT
  Sex: Female

DRUGS (4)
  1. FOSAMAX [Suspect]
     Active Substance: ALENDRONATE SODIUM
     Dosage: 10
     Route: 048
     Dates: end: 200107
  2. CALCIUM (UNSPECIFIED) [Concomitant]
     Active Substance: CALCIUM
     Indication: PRODUCT USED FOR UNKNOWN INDICATION
     Dosage: 1200 MG, BID
     Route: 065
     Dates: start: 1964
  3. FOSAMAX [Suspect]
     Active Substance: ALENDRONATE SODIUM
     Dosage: 70 MG, QW
     Route: 048
     Dates: start: 200108, end: 200709
  4. FOSAMAX [Suspect]
     Active Substance: ALENDRONATE SODIUM
     Indication: OSTEOPOROSIS PROPHYLAXIS
     Dosage: UNK
     Route: 048
     Dates: start: 199701

REACTIONS (25)
  - Osteoporosis [Unknown]
  - Fracture displacement [Unknown]
  - Scar [Unknown]
  - Chronic kidney disease [Unknown]
  - Deficiency anaemia [Unknown]
  - Bone disorder [Unknown]
  - Muscular weakness [Unknown]
  - Osteoporosis [Unknown]
  - Arthropathy [Unknown]
  - Anaemia [Unknown]
  - Hypertension [Unknown]
  - Intramedullary rod insertion [Unknown]
  - Enchondromatosis [Unknown]
  - Arterial insufficiency [Unknown]
  - Skin atrophy [Unknown]
  - Intramedullary rod insertion [Unknown]
  - Osteoporosis [Unknown]
  - Bone infarction [Unknown]
  - Hyperlipidaemia [Unknown]
  - Femur fracture [Unknown]
  - Osteopenia [Unknown]
  - Arthropathy [Unknown]
  - Enostosis [Unknown]
  - Femur fracture [Unknown]
  - Muscle atrophy [Unknown]

NARRATIVE: CASE EVENT DATE: 200206
